FAERS Safety Report 5119235-8 (Version None)
Quarter: 2006Q3

REPORT INFORMATION
  Report Type: 
  Country: None (occurrence: None)
  Receive Date: 20060929
  Receipt Date: 20060926
  Transmission Date: 20061208
  Serious: Yes (Hospitalization)
  Sender: FDA-Public Use
  Company Number: GXKR2005US02075

PATIENT
  Age: 16 Year
  Sex: Male

DRUGS (3)
  1. BUPROPION HCL [Suspect]
     Indication: DEPRESSION
     Dosage: 100 MG, BID,
  2. METHYLPHENIDATE HCL [Suspect]
     Indication: ATTENTION DEFICIT/HYPERACTIVITY DISORDER
     Dosage: 30 MG, BID,
  3. ERYTHROMYCIN [Suspect]
     Dosage: 999 MG,

REACTIONS (5)
  - ACUTE MYOCARDIAL INFARCTION [None]
  - ANTIDEPRESSANT DRUG LEVEL INCREASED [None]
  - CARDIAC DISORDER [None]
  - DRUG INTERACTION [None]
  - VASOSPASM [None]
